FAERS Safety Report 10409916 (Version 2)
Quarter: 2014Q4

REPORT INFORMATION
  Report Type: Spontaneous
  Country: US (occurrence: None)
  Receive Date: 20140604
  Receipt Date: 20141010
  Transmission Date: 20150528
  Serious: No
  Sender: FDA-Public Use
  Company Number: 163-POMAL-14044136

PATIENT
  Age: 77 Year
  Sex: Male
  Weight: 78.47 kg

DRUGS (9)
  1. TAMSULOSIN [Concomitant]
     Active Substance: TAMSULOSIN
  2. LYRICA [Concomitant]
     Active Substance: PREGABALIN
  3. FINASTERIDE. [Concomitant]
     Active Substance: FINASTERIDE
  4. OMEGA 3 (FISH OIL) [Concomitant]
     Active Substance: OMEGA-3 FATTY ACIDS
  5. VITAMIN D3 [Concomitant]
     Active Substance: CHOLECALCIFEROL
  6. POMALYST [Suspect]
     Active Substance: POMALIDOMIDE
     Indication: PLASMA CELL MYELOMA
     Dosage: 21 IN 28 D
     Route: 048
     Dates: start: 20140328
  7. INDAPAMIDE (BI PREDONIUM) [Concomitant]
  8. VITAMIN D1 (ERGOCALCIFEROL) [Concomitant]
  9. VITAMIN B1 [Concomitant]
     Active Substance: THIAMINE HYDROCHLORIDE

REACTIONS (8)
  - Chest discomfort [None]
  - Fatigue [None]
  - Depressed level of consciousness [None]
  - Dizziness [None]
  - Rash [None]
  - Asthenia [None]
  - Abdominal pain [None]
  - Constipation [None]

NARRATIVE: CASE EVENT DATE: 20140409
